FAERS Safety Report 25273825 (Version 2)
Quarter: 2025Q3

REPORT INFORMATION
  Report Type: Spontaneous
  Country: IN (occurrence: IN)
  Receive Date: 20250506
  Receipt Date: 20250702
  Transmission Date: 20251021
  Serious: Yes (Hospitalization, Disabling)
  Sender: TORRENT PHARMA INC.
  Company Number: IN-MLMSERVICE-20250421-PI487058-00285-1

PATIENT
  Age: 49 Year
  Sex: Male
  Weight: 78 kg

DRUGS (2)
  1. RISPERIDONE [Interacting]
     Active Substance: RISPERIDONE
     Indication: Schizophrenia
     Route: 048
  2. TRAMADOL [Interacting]
     Active Substance: TRAMADOL
     Indication: Pain
     Route: 048

REACTIONS (2)
  - Drug interaction [Recovered/Resolved]
  - Dyskinesia [Recovered/Resolved]
